FAERS Safety Report 8241415-3 (Version None)
Quarter: 2012Q1

REPORT INFORMATION
  Report Type: 
  Country: None (occurrence: None)
  Receive Date: 20120314
  Receipt Date: 20120111
  Transmission Date: 20120608
  Serious: Yes (Hospitalization)
  Sender: FDA-Public Use
  Company Number: E7389-01763-SPO-US

PATIENT
  Sex: Female

DRUGS (2)
  1. HALAVEN [Suspect]
     Indication: METASTASES TO SKIN
     Dosage: INTRAVENOUS INFUSION ; INTERMITTENT SINCE 19 OCT 2011
  2. HALAVEN [Suspect]
     Indication: BREAST CANCER METASTATIC
     Dosage: INTRAVENOUS INFUSION ; INTERMITTENT SINCE 19 OCT 2011

REACTIONS (3)
  - NEUROPATHY PERIPHERAL [None]
  - ABDOMINAL PAIN UPPER [None]
  - NAUSEA [None]
